FAERS Safety Report 8947896 (Version 1)
Quarter: 2012Q4

REPORT INFORMATION
  Report Type: 
  Country: US (occurrence: US)
  Receive Date: 20121204
  Receipt Date: 20121204
  Transmission Date: 20130627
  Serious: Yes (Congenital Anomaly, Other)
  Sender: FDA-Public Use
  Company Number: US-PFIZER INC-2012300543

PATIENT
  Sex: Female
  Weight: 3.2 kg

DRUGS (14)
  1. ZOLOFT [Suspect]
     Indication: DEPRESSION
     Dosage: 75 mg, 1x/day
     Route: 064
     Dates: start: 20100413
  2. ZOLOFT [Suspect]
     Dosage: 50 mg, 1x/day
     Route: 064
     Dates: start: 20100626
  3. SERTRALINE HCL [Suspect]
     Dosage: 50 mg, UNK
     Route: 064
     Dates: start: 20100824
  4. COMPAZINE [Concomitant]
     Indication: NAUSEA
     Dosage: 10 mg, UNK
     Route: 064
     Dates: start: 20100330
  5. DILAUDID [Concomitant]
     Dosage: 2 mg/ml
     Route: 064
     Dates: start: 20100330
  6. TYLENOL [Concomitant]
     Dosage: 650 mg, UNK
     Route: 064
     Dates: start: 20100330
  7. ELIMITE [Concomitant]
     Dosage: 5 %, UNK
     Route: 064
     Dates: start: 20100330
  8. ZOFRON [Concomitant]
     Dosage: 4 mg/2 ml
     Route: 064
     Dates: start: 20100330
  9. MICROBID [Concomitant]
     Dosage: 800 mg/160 mg
     Route: 064
     Dates: start: 20100404
  10. PRENATAL VITAMINS [Concomitant]
     Dosage: UNK
     Route: 064
     Dates: start: 20100404
  11. CEPHALEXIN [Concomitant]
     Dosage: 500 mg, 3x/day
     Route: 064
     Dates: start: 20100626
  12. LORTAB [Concomitant]
     Dosage: 7.5 mg/500mg
     Route: 064
     Dates: start: 20100706
  13. METRONIDAZOLE [Concomitant]
     Dosage: 0.75 %, UNK
     Route: 064
     Dates: start: 20100911
  14. MICATIN [Concomitant]
     Dosage: 2 %, UNK
     Route: 064
     Dates: start: 20100911

REACTIONS (8)
  - Maternal exposure timing unspecified [Unknown]
  - Ebstein^s anomaly [Unknown]
  - Tricuspid valve incompetence [Recovering/Resolving]
  - Right atrial dilatation [Unknown]
  - Dilatation ventricular [Unknown]
  - Right ventricular hypertrophy [Unknown]
  - Atrial septal defect [Unknown]
  - Right ventricular dysfunction [Recovering/Resolving]
